FAERS Safety Report 7471858-7 (Version None)
Quarter: 2011Q2

REPORT INFORMATION
  Report Type: 
  Country: None (occurrence: None)
  Receive Date: 20110511
  Receipt Date: 20100617
  Transmission Date: 20111010
  Serious: No
  Sender: FDA-Public Use
  Company Number: A0865739A

PATIENT
  Sex: Female

DRUGS (2)
  1. TYKERB [Suspect]
     Dosage: 250MG TWICE PER DAY
     Route: 048
     Dates: start: 20081101
  2. HERCEPTIN [Concomitant]

REACTIONS (2)
  - NAIL INFECTION [None]
  - NAIL DISORDER [None]
